FAERS Safety Report 15214598 (Version 7)
Quarter: 2020Q4

REPORT INFORMATION
  Report Type: Report from Study
  Country: DE (occurrence: DE)
  Receive Date: 20180730
  Receipt Date: 20201028
  Transmission Date: 20210113
  Serious: Yes (Hospitalization, Other)
  Sender: FDA-Public Use
  Company Number: PHHY2018DE054123

PATIENT
  Age: 53 Year
  Sex: Male
  Weight: 81 kg

DRUGS (2)
  1. COSENTYX [Suspect]
     Active Substance: SECUKINUMAB
     Indication: ANKYLOSING SPONDYLITIS
     Dosage: 150 MG, QMO
     Route: 058
     Dates: start: 20160122, end: 20160218
  2. COSENTYX [Suspect]
     Active Substance: SECUKINUMAB
     Dosage: 150 MG, QMO
     Route: 058
     Dates: start: 20160219, end: 20180416

REACTIONS (2)
  - Intervertebral discitis [Recovered/Resolved]
  - Osteochondrosis [Recovered/Resolved]

NARRATIVE: CASE EVENT DATE: 20180416
